FAERS Safety Report 19934649 (Version 1)
Quarter: 2021Q4

REPORT INFORMATION
  Report Type: Spontaneous
  Country: US (occurrence: US)
  Receive Date: 20211008
  Receipt Date: 20211008
  Transmission Date: 20220303
  Serious: No
  Sender: FDA-Public Use
  Company Number: US-GLAXOSMITHKLINE-USCH2021068708

PATIENT
  Age: 79 Year
  Sex: Female

DRUGS (1)
  1. VOLTAREN ARTHRITIS PAIN [Suspect]
     Active Substance: DICLOFENAC SODIUM
     Indication: Arthritis
     Dosage: UNK

REACTIONS (7)
  - Application site irritation [Unknown]
  - Nausea [Recovering/Resolving]
  - Headache [Unknown]
  - Application site ulcer [Unknown]
  - Erythema [Not Recovered/Not Resolved]
  - Off label use [Unknown]
  - Product use issue [Unknown]
